FAERS Safety Report 7269939-6 (Version None)
Quarter: 2011Q1

REPORT INFORMATION
  Report Type: 
  Country: None (occurrence: None)
  Receive Date: 20110202
  Receipt Date: 20110127
  Transmission Date: 20110831
  Serious: Yes (Other)
  Sender: FDA-Public Use
  Company Number: US-ROCHE-450689

PATIENT
  Sex: Female
  Weight: 56.7 kg

DRUGS (1)
  1. ACCUTANE [Suspect]
     Route: 048
     Dates: start: 19910809, end: 19911204

REACTIONS (21)
  - BREAST PROSTHESIS REMOVAL [None]
  - DEPRESSION [None]
  - ANXIETY [None]
  - LIP DRY [None]
  - HAEMATURIA [None]
  - MITRAL VALVE PROLAPSE [None]
  - COLITIS [None]
  - FUNGAL INFECTION [None]
  - HAEMORRHOIDS [None]
  - DRY EYE [None]
  - ECZEMA [None]
  - FIBROADENOMA OF BREAST [None]
  - PANIC ATTACK [None]
  - NASAL DRYNESS [None]
  - BREAST CYST [None]
  - PROCTITIS [None]
  - COLITIS ULCERATIVE [None]
  - PROCTITIS ULCERATIVE [None]
  - EPISTAXIS [None]
  - OVARIAN CYST [None]
  - GASTROENTERITIS VIRAL [None]
